FAERS Safety Report 11040116 (Version 4)
Quarter: 2015Q3

REPORT INFORMATION
  Report Type: Spontaneous
  Country: US (occurrence: US)
  Receive Date: 20150416
  Receipt Date: 20150722
  Transmission Date: 20151125
  Serious: Yes (Other)
  Sender: FDA-Public Use
  Company Number: US-PFIZER INC-2015128638

PATIENT
  Age: 12 Year
  Sex: Male
  Weight: 41 kg

DRUGS (4)
  1. PHENYLEPHRINE HYDROCHLORIDE. [Concomitant]
     Active Substance: PHENYLEPHRINE HYDROCHLORIDE
     Dosage: UNK
     Dates: start: 201409, end: 201503
  2. PHOSPHOLINE IODIDE [Suspect]
     Active Substance: ECHOTHIOPHATE IODIDE
     Indication: STRABISMUS
     Dosage: ONE DROP EACH EYE, DAILY
     Dates: start: 201409, end: 201503
  3. PHENYLEPHRINE HYDROCHLORIDE. [Concomitant]
     Active Substance: PHENYLEPHRINE HYDROCHLORIDE
     Indication: PROPHYLAXIS
     Dosage: 1 GTT, 1X/DAY AT NIGHT
     Route: 047
  4. PHOSPHOLINE IODIDE [Suspect]
     Active Substance: ECHOTHIOPHATE IODIDE
     Indication: CYSTIC EYEBALL, CONGENITAL

REACTIONS (3)
  - Disease progression [Not Recovered/Not Resolved]
  - Drug ineffective [Not Recovered/Not Resolved]
  - Orbital cyst [Unknown]

NARRATIVE: CASE EVENT DATE: 201503
